FAERS Safety Report 10904158 (Version 1)
Quarter: 2015Q1

REPORT INFORMATION
  Report Type: Spontaneous
  Country: US (occurrence: None)
  Receive Date: 20150303
  Receipt Date: 20150303
  Transmission Date: 20150721
  Serious: Yes (Life-Threatening, Hospitalization)
  Sender: FDA-Public Use
  Company Number: None

PATIENT
  Age: 62 Year
  Sex: Female
  Weight: 71.22 kg

DRUGS (10)
  1. SMOOTHIE [Concomitant]
  2. PREDNISONE. [Concomitant]
     Active Substance: PREDNISONE
  3. COQ10 [Concomitant]
     Active Substance: UBIDECARENONE
  4. LABETALOL HCL [Suspect]
     Active Substance: LABETALOL HYDROCHLORIDE
     Indication: HYPERTENSION
     Dosage: 1 PILL
     Route: 048
     Dates: start: 2011
  5. VITAMIN D3 [Concomitant]
     Active Substance: CHOLECALCIFEROL
  6. LABETALOL [Concomitant]
     Active Substance: LABETALOL\LABETALOL HYDROCHLORIDE
  7. GLIMEPIRIDE. [Concomitant]
     Active Substance: GLIMEPIRIDE
  8. HYDROCHLORITHIAZIDE [Concomitant]
  9. VITAMIN B COMPLEX [Concomitant]
     Active Substance: CYANOCOBALAMIN\DEXPANTHENOL\NIACINAMIDE\PYRIDOXINE HYDROCHLORIDE\RIBOFLAVIN 5^-PHOSPHATE SODIUM\THIAMINE HYDROCHLORIDE\VITAMIN B COMPLEX
  10. VITAMIN C [Concomitant]
     Active Substance: ASCORBIC ACID

REACTIONS (3)
  - Movement disorder [None]
  - Myositis [None]
  - Pain of skin [None]

NARRATIVE: CASE EVENT DATE: 20110201
